FAERS Safety Report 23897658 (Version 1)
Quarter: 2024Q2

REPORT INFORMATION
  Report Type: Spontaneous
  Country: CN (occurrence: CN)
  Receive Date: 20240524
  Receipt Date: 20240524
  Transmission Date: 20240716
  Serious: Yes (Hospitalization, Other)
  Sender: FDA-Public Use
  Company Number: CN-009507513-2405CHN005572

PATIENT
  Age: 62 Year
  Sex: Male

DRUGS (7)
  1. KEYTRUDA [Suspect]
     Active Substance: PEMBROLIZUMAB
     Indication: Non-small cell lung cancer
     Dosage: 200 MG, Q3W, IV DRIP
     Route: 041
     Dates: start: 20230926
  2. KEYTRUDA [Suspect]
     Active Substance: PEMBROLIZUMAB
     Dosage: D1, 200 MG, Q3W, IV DRIP
     Route: 041
     Dates: start: 20231225, end: 20231225
  3. KEYTRUDA [Suspect]
     Active Substance: PEMBROLIZUMAB
     Dosage: D1, 200 MG, Q3W, IV DRIP
     Route: 041
     Dates: start: 20240116, end: 20240116
  4. KEYTRUDA [Suspect]
     Active Substance: PEMBROLIZUMAB
     Dosage: D1, 200 MG, Q3W, IV DRIP
     Route: 041
     Dates: start: 20240228, end: 20240228
  5. KEYTRUDA [Suspect]
     Active Substance: PEMBROLIZUMAB
     Dosage: D1, 200 MG, Q3W, IV DRIP
     Route: 041
     Dates: start: 20240321, end: 20240321
  6. CARBOPLATIN [Suspect]
     Active Substance: CARBOPLATIN
     Indication: Non-small cell lung cancer
     Dosage: UNK
     Dates: start: 20230926, end: 20240321
  7. PACLITAXEL [Suspect]
     Active Substance: PACLITAXEL
     Indication: Non-small cell lung cancer
     Dosage: UNK
     Dates: start: 20230926, end: 20240321

REACTIONS (24)
  - Encephalitis autoimmune [Recovering/Resolving]
  - Psychotic disorder due to a general medical condition [Unknown]
  - Malignant neoplasm progression [Unknown]
  - Radiotherapy [Recovered/Resolved]
  - Rash pruritic [Unknown]
  - Haemangioma [Unknown]
  - Hypopituitarism [Unknown]
  - Dizziness [Recovered/Resolved]
  - Headache [Recovered/Resolved]
  - Vomiting [Unknown]
  - Somnolence [Unknown]
  - Disorganised speech [Unknown]
  - Agnosia [Unknown]
  - Amnesia [Unknown]
  - Decreased appetite [Recovering/Resolving]
  - Gait disturbance [Unknown]
  - Diarrhoea [Recovered/Resolved]
  - Urine output decreased [Unknown]
  - Computerised tomogram head abnormal [Unknown]
  - Magnetic resonance imaging head abnormal [Unknown]
  - Chest discomfort [Unknown]
  - Inappropriate schedule of product administration [Unknown]
  - Inappropriate schedule of product administration [Unknown]
  - Inappropriate schedule of product administration [Unknown]

NARRATIVE: CASE EVENT DATE: 20240101
